FAERS Safety Report 8576444-3 (Version None)
Quarter: 2012Q3

REPORT INFORMATION
  Report Type: 
  Country: None (occurrence: None)
  Receive Date: 20120725
  Receipt Date: 20120711
  Transmission Date: 20120928
  Serious: Yes (Other)
  Sender: FDA-Public Use
  Company Number: 2011MA002696

PATIENT
  Sex: Female
  Weight: 68.4932 kg

DRUGS (2)
  1. METOCLOPRAMIDE [Suspect]
     Indication: GASTROOESOPHAGEAL REFLUX DISEASE
     Dosage: 10 MG; PO
     Route: 048
     Dates: start: 19960301, end: 20100401
  2. METOCLOPRAMIDE [Suspect]
     Indication: GASTRIC ULCER
     Dosage: 10 MG; PO
     Route: 048
     Dates: start: 19960301, end: 20100401

REACTIONS (9)
  - EXTRAPYRAMIDAL DISORDER [None]
  - EMOTIONAL DISORDER [None]
  - TREMOR [None]
  - FAMILY STRESS [None]
  - TARDIVE DYSKINESIA [None]
  - DYSTONIA [None]
  - ECONOMIC PROBLEM [None]
  - AKATHISIA [None]
  - DYSKINESIA [None]
